FAERS Safety Report 13122936 (Version 2)
Quarter: 2017Q1

REPORT INFORMATION
  Report Type: Spontaneous
  Country: JP (occurrence: JP)
  Receive Date: 20170117
  Receipt Date: 20170126
  Transmission Date: 20170428
  Serious: Yes (Other)
  Sender: FDA-Public Use
  Company Number: JP-ASTELLAS-2017JP000453AA

PATIENT
  Age: 76 Year
  Sex: Male

DRUGS (1)
  1. [NO SUSPECT PRODUCT] [Suspect]
     Active Substance: UNSPECIFIED INGREDIENT

REACTIONS (2)
  - Intentional underdose [Unknown]
  - Hepatitis [Recovered/Resolved]
